FAERS Safety Report 9431611 (Version 3)
Quarter: 2013Q3

REPORT INFORMATION
  Report Type: Spontaneous
  Country: US (occurrence: US)
  Receive Date: 20130731
  Receipt Date: 20130913
  Transmission Date: 20140515
  Serious: Yes (Hospitalization)
  Sender: FDA-Public Use
  Company Number: US-BIOGENIDEC-2013BI069017

PATIENT
  Age: 64 Year
  Sex: Female

DRUGS (11)
  1. TYSABRI [Suspect]
     Indication: MULTIPLE SCLEROSIS
     Route: 042
     Dates: start: 20130321
  2. BACLOFEN [Concomitant]
  3. PRIALT [Concomitant]
     Indication: PAIN
     Dates: start: 20130301, end: 201307
  4. DILAUDID [Concomitant]
     Indication: PAIN
     Dates: start: 2013
  5. LISINOPRIL [Concomitant]
  6. FUROSEMIDE [Concomitant]
  7. CYMBALTA [Concomitant]
  8. LEVOTHYROXINE [Concomitant]
  9. OXCARBAZEPINE [Concomitant]
  10. ADVAIR [Concomitant]
  11. SPIRIVA [Concomitant]

REACTIONS (2)
  - Psychotic disorder [Recovered/Resolved]
  - Skin injury [Not Recovered/Not Resolved]
